APPROVED DRUG PRODUCT: CLOFIBRATE
Active Ingredient: CLOFIBRATE
Strength: 500MG
Dosage Form/Route: CAPSULE;ORAL
Application: A071603 | Product #001
Applicant: WATSON LABORATORIES INC
Approved: Sep 18, 1987 | RLD: No | RS: No | Type: DISCN